FAERS Safety Report 7769712-6 (Version None)
Quarter: 2011Q3

REPORT INFORMATION
  Report Type: 
  Country: None (occurrence: None)
  Receive Date: 20110922
  Receipt Date: 20110118
  Transmission Date: 20111222
  Serious: No
  Sender: FDA-Public Use
  Company Number: US-ASTRAZENECA-2011SE03151

PATIENT
  Age: 31 Year
  Sex: Female
  Weight: 72.6 kg

DRUGS (5)
  1. XANAX [Concomitant]
     Indication: ANXIETY
  2. TOPAMAX [Concomitant]
     Indication: HEADACHE
  3. SEROQUEL [Suspect]
     Indication: BIPOLAR DISORDER
     Dosage: 150MG AT AM, 150MG AT 4PM AND 300MG AT NIGHT
     Route: 048
  4. TRILEPTAL [Concomitant]
     Indication: MOOD SWINGS
  5. PROZAC [Concomitant]
     Indication: DEPRESSION

REACTIONS (3)
  - RENAL PAIN [None]
  - WEIGHT INCREASED [None]
  - DRUG INEFFECTIVE [None]
